FAERS Safety Report 20628963 (Version 1)
Quarter: 2022Q1

REPORT INFORMATION
  Report Type: Spontaneous
  Country: US (occurrence: None)
  Receive Date: 20220323
  Receipt Date: 20220323
  Transmission Date: 20220423
  Serious: Yes (Other)
  Sender: FDA-Public Use
  Company Number: None

PATIENT
  Age: 77 Year
  Sex: Male
  Weight: 75.24 kg

DRUGS (2)
  1. CORIFACT [Suspect]
     Active Substance: FACTOR XIII CONCENTRATE (HUMAN)
     Indication: Factor XIII deficiency
     Dosage: FREQUENCY : AS NEEDED;?
     Route: 042
  2. CORIFACT [Concomitant]
     Active Substance: FACTOR XIII CONCENTRATE (HUMAN)
     Dates: start: 20220323

REACTIONS (3)
  - Flushing [None]
  - Headache [None]
  - Infusion related reaction [None]

NARRATIVE: CASE EVENT DATE: 20220323
